FAERS Safety Report 13567983 (Version 1)
Quarter: 2017Q2

REPORT INFORMATION
  Report Type: Spontaneous
  Country: CR (occurrence: CR)
  Receive Date: 20170522
  Receipt Date: 20170522
  Transmission Date: 20170830
  Serious: Yes (Other)
  Sender: FDA-Public Use
  Company Number: CR-GLAXOSMITHKLINE-CR2017GSK071792

PATIENT
  Age: 49 Year
  Sex: Female

DRUGS (1)
  1. SERETIDE [Suspect]
     Active Substance: FLUTICASONE PROPIONATE\SALMETEROL XINAFOATE
     Indication: PRODUCT USED FOR UNKNOWN INDICATION
     Dosage: ONE INHALATION, ONCE A DAY
     Route: 048

REACTIONS (2)
  - Product use issue [Unknown]
  - Asthmatic crisis [Unknown]
